FAERS Safety Report 7108955-1 (Version None)
Quarter: 2010Q4

REPORT INFORMATION
  Report Type: 
  Country: None (occurrence: None)
  Receive Date: 20101117
  Receipt Date: 20101104
  Transmission Date: 20110411
  Serious: Yes (Other)
  Sender: FDA-Public Use
  Company Number: US-JNJFOC-20101007432

PATIENT
  Sex: Female

DRUGS (4)
  1. REMICADE [Suspect]
     Indication: COLITIS ULCERATIVE
     Route: 042
  2. PREDNISONE [Suspect]
     Indication: ILL-DEFINED DISORDER
  3. MERCAPTOPURINE [Suspect]
     Indication: ILL-DEFINED DISORDER
  4. FLUCONAZOLE [Concomitant]
     Indication: FUNGAL INFECTION

REACTIONS (4)
  - DERMATITIS ALLERGIC [None]
  - FUNGAL INFECTION [None]
  - HYPERKERATOSIS [None]
  - MELANOCYTIC NAEVUS [None]
